FAERS Safety Report 6447425-0 (Version None)
Quarter: 2009Q4

REPORT INFORMATION
  Report Type: 
  Country: None (occurrence: None)
  Receive Date: 20091119
  Receipt Date: 20091114
  Transmission Date: 20100525
  Serious: Yes (Other)
  Sender: FDA-Public Use
  Company Number: US-RB-021816-09

PATIENT
  Age: 43 Year
  Sex: Female

DRUGS (2)
  1. SUBOXONE [Suspect]
     Indication: DRUG USE FOR UNKNOWN INDICATION
     Route: 060
  2. SUBOXONE [Suspect]
     Route: 060

REACTIONS (5)
  - ABDOMINAL DISCOMFORT [None]
  - HALLUCINATION [None]
  - HEPATIC PAIN [None]
  - MALAISE [None]
  - WITHDRAWAL SYNDROME [None]
